FAERS Safety Report 14334964 (Version 1)
Quarter: 2017Q4

REPORT INFORMATION
  Report Type: Report from Study
  Country: AU (occurrence: AU)
  Receive Date: 20171229
  Receipt Date: 20171229
  Transmission Date: 20180321
  Serious: Yes (Other)
  Sender: FDA-Public Use
  Company Number: AU-ACCORD-062366

PATIENT
  Sex: Female

DRUGS (1)
  1. METHOTREXATE. [Suspect]
     Active Substance: METHOTREXATE
     Indication: METASTASES TO MENINGES
     Dosage: 6 MG TWICE-WEEKLY FOR 2-4 WEEKS
     Route: 037

REACTIONS (2)
  - Off label use [Unknown]
  - Haematotoxicity [Unknown]
